FAERS Safety Report 8395106-9 (Version None)
Quarter: 2012Q2

REPORT INFORMATION
  Report Type: 
  Country: None (occurrence: None)
  Receive Date: 20120530
  Receipt Date: 20120525
  Transmission Date: 20120825
  Serious: Yes (Life-Threatening, Hospitalization)
  Sender: FDA-Public Use
  Company Number: PT-PFIZER INC-2012126990

PATIENT
  Age: 53 Year
  Sex: Female

DRUGS (1)
  1. SUTENT [Suspect]
     Indication: METASTATIC RENAL CELL CARCINOMA
     Dosage: 50 MG, 1X/DAY
     Route: 048
     Dates: start: 20120501, end: 20120501

REACTIONS (9)
  - HEPATOTOXICITY [None]
  - PNEUMONIA [None]
  - THROMBOCYTOPENIA [None]
  - DIARRHOEA [None]
  - METRORRHAGIA [None]
  - DRUG INTERACTION [None]
  - NEPHROPATHY TOXIC [None]
  - ANAEMIA [None]
  - PYREXIA [None]
